FAERS Safety Report 23350046 (Version 1)
Quarter: 2023Q4

REPORT INFORMATION
  Report Type: Spontaneous
  Country: US (occurrence: US)
  Receive Date: 20231229
  Receipt Date: 20231229
  Transmission Date: 20240110
  Serious: Yes (Hospitalization, Other)
  Sender: FDA-Public Use
  Company Number: US-ALEMBIC PHARMACUETICALS LIMITED-2023SCAL001260

PATIENT

DRUGS (15)
  1. CYCLOPHOSPHAMIDE [Suspect]
     Active Substance: CYCLOPHOSPHAMIDE
     Indication: Hodgkin^s disease
     Dosage: UNK
     Route: 065
  2. CYCLOPHOSPHAMIDE [Suspect]
     Active Substance: CYCLOPHOSPHAMIDE
     Indication: Vanishing bile duct syndrome
  3. PREDNISOLONE [Suspect]
     Active Substance: PREDNISOLONE
     Indication: Hodgkin^s disease
     Dosage: 35 MILLIGRAM, BID
     Route: 065
  4. PREDNISOLONE [Suspect]
     Active Substance: PREDNISOLONE
     Indication: Vanishing bile duct syndrome
  5. BRENTUXIMAB [Suspect]
     Active Substance: BRENTUXIMAB
     Indication: Hodgkin^s disease
     Dosage: UNK
     Route: 065
  6. BRENTUXIMAB [Suspect]
     Active Substance: BRENTUXIMAB
     Indication: Vanishing bile duct syndrome
  7. DOXORUBICIN [Suspect]
     Active Substance: DOXORUBICIN
     Indication: Hodgkin^s disease
     Dosage: UNK
     Route: 065
  8. DOXORUBICIN [Suspect]
     Active Substance: DOXORUBICIN
     Indication: Vanishing bile duct syndrome
  9. VINCRISTINE [Suspect]
     Active Substance: VINCRISTINE
     Indication: Hodgkin^s disease
     Dosage: UNK
     Route: 065
  10. VINCRISTINE [Suspect]
     Active Substance: VINCRISTINE
     Indication: Vanishing bile duct syndrome
  11. ETOPOSIDE [Suspect]
     Active Substance: ETOPOSIDE
     Indication: Hodgkin^s disease
     Dosage: UNK
     Route: 065
  12. ETOPOSIDE [Suspect]
     Active Substance: ETOPOSIDE
     Indication: Vanishing bile duct syndrome
  13. URSODIOL [Concomitant]
     Active Substance: URSODIOL
     Indication: Pruritus
     Dosage: UNK
     Route: 065
  14. DIPHENHYDRAMINE [Concomitant]
     Active Substance: DIPHENHYDRAMINE
     Indication: Pruritus
     Dosage: UNK
     Route: 065
  15. COLESTIPOL [Concomitant]
     Active Substance: COLESTIPOL
     Indication: Pruritus
     Dosage: UNK
     Route: 065

REACTIONS (6)
  - Alpha haemolytic streptococcal infection [Unknown]
  - Clostridium difficile colitis [Unknown]
  - Klebsiella infection [Unknown]
  - Neutropenic infection [Unknown]
  - Febrile neutropenia [Unknown]
  - Pneumonitis [Unknown]
